FAERS Safety Report 23307571 (Version 1)
Quarter: 2023Q4

REPORT INFORMATION
  Report Type: Spontaneous
  Country: US (occurrence: US)
  Receive Date: 20231218
  Receipt Date: 20231218
  Transmission Date: 20240110
  Serious: Yes (Hospitalization, Other)
  Sender: FDA-Public Use
  Company Number: US-APOTEX-2023AP017954

PATIENT
  Age: 53 Year
  Sex: Female

DRUGS (2)
  1. SELEGILINE [Interacting]
     Active Substance: SELEGILINE
     Indication: Product used for unknown indication
     Dosage: 5 MILLIGRAM, QD
     Route: 065
  2. PHENETHYLAMINE [Interacting]
     Active Substance: PHENETHYLAMINE
     Indication: Product used for unknown indication
     Dosage: UNK (UNREGULATED AMOUNTS)
     Route: 065

REACTIONS (3)
  - Subarachnoid haemorrhage [Unknown]
  - Drug interaction [Unknown]
  - Prescription drug used without a prescription [Unknown]
